FAERS Safety Report 5369009-8 (Version None)
Quarter: 2007Q2

REPORT INFORMATION
  Report Type: 
  Country: None (occurrence: None)
  Receive Date: 20070625
  Receipt Date: 20061208
  Transmission Date: 20071010
  Serious: No
  Sender: FDA-Public Use
  Company Number: US-ASTRAZENECA-2006UW27291

PATIENT
  Age: 56 Year
  Sex: Male
  Weight: 65.8 kg

DRUGS (2)
  1. CRESTOR [Suspect]
     Indication: BLOOD CHOLESTEROL INCREASED
     Route: 048
     Dates: start: 20060601
  2. SYNTHROID [Concomitant]

REACTIONS (1)
  - OSTEOCHONDROMA [None]
